FAERS Safety Report 20803950 (Version 4)
Quarter: 2022Q4

REPORT INFORMATION
  Report Type: Report from Study
  Country: US (occurrence: US)
  Receive Date: 20220509
  Receipt Date: 20221212
  Transmission Date: 20230112
  Serious: Yes (Hospitalization, Other)
  Sender: FDA-Public Use
  Company Number: US-TAKEDA-2022TUS030199

PATIENT
  Sex: Female
  Weight: 90 kg

DRUGS (28)
  1. HUMAN IMMUNOGLOBULIN G [Suspect]
     Active Substance: HUMAN IMMUNOGLOBULIN G
     Indication: Immunodeficiency common variable
     Dosage: 10 GRAM, 1/WEEK
     Route: 058
     Dates: start: 20210325
  2. HUMAN IMMUNOGLOBULIN G [Suspect]
     Active Substance: HUMAN IMMUNOGLOBULIN G
     Dosage: 12 GRAM, 1/WEEK
     Route: 058
     Dates: start: 20210325
  3. HUMAN IMMUNOGLOBULIN G [Suspect]
     Active Substance: HUMAN IMMUNOGLOBULIN G
     Dosage: 12 GRAM, 1/WEEK
     Route: 058
     Dates: start: 20210325
  4. HUMAN IMMUNOGLOBULIN G [Suspect]
     Active Substance: HUMAN IMMUNOGLOBULIN G
     Dosage: 12 GRAM, 1/WEEK
     Route: 058
     Dates: start: 20210325
  5. ACETAMINOPHEN [Concomitant]
     Active Substance: ACETAMINOPHEN
  6. DIPHENHYDRAMINE [Concomitant]
     Active Substance: DIPHENHYDRAMINE
  7. EPINEPHRINE [Concomitant]
     Active Substance: EPINEPHRINE
  8. Lmx [Concomitant]
  9. REFRESH OPTIVE [Concomitant]
     Active Substance: CARBOXYMETHYLCELLULOSE SODIUM\GLYCERIN
  10. PRAVASTATIN [Concomitant]
     Active Substance: PRAVASTATIN
  11. FLUTICASONE FUROATE\SALMETEROL XINAFOATE [Concomitant]
     Active Substance: FLUTICASONE FUROATE\SALMETEROL XINAFOATE
  12. ASPIRIN [Concomitant]
     Active Substance: ASPIRIN
  13. CETIRIZINE [Concomitant]
     Active Substance: CETIRIZINE HYDROCHLORIDE
  14. SPIRIVA RESPIMAT [Concomitant]
     Active Substance: TIOTROPIUM BROMIDE
  15. MONTELUKAST [Concomitant]
     Active Substance: MONTELUKAST SODIUM
  16. LEFLUNOMIDE [Concomitant]
     Active Substance: LEFLUNOMIDE
  17. VITAMIN B [Concomitant]
     Active Substance: VITAMIN B
  18. MAGNESIUM [Concomitant]
     Active Substance: MAGNESIUM
  19. VITAMIN C [Concomitant]
     Active Substance: ASCORBIC ACID
  20. CALCIUM CITRATE\CHOLECALCIFEROL [Concomitant]
     Active Substance: CALCIUM CITRATE\CHOLECALCIFEROL
  21. SPIRONOLACTONE [Concomitant]
     Active Substance: SPIRONOLACTONE
  22. OMEGA-3 ACIDS [Concomitant]
     Active Substance: OMEGA-3 FATTY ACIDS
  23. AMLODIPINE [Concomitant]
     Active Substance: AMLODIPINE BESYLATE
  24. LOTENSIN [Concomitant]
     Active Substance: BENAZEPRIL HYDROCHLORIDE
  25. IBUPROFEN [Concomitant]
     Active Substance: IBUPROFEN
  26. PROAIR RESPICLICK [Concomitant]
     Active Substance: ALBUTEROL SULFATE
  27. DESOXIMETASONE [Concomitant]
     Active Substance: DESOXIMETASONE
  28. ALIGN [Concomitant]
     Active Substance: BIFIDOBACTERIUM LONGUM SUBSP. INFANTIS

REACTIONS (11)
  - Transient ischaemic attack [Unknown]
  - Rheumatoid arthritis [Unknown]
  - Pneumonia [Unknown]
  - Cataract [Unknown]
  - Tooth infection [Unknown]
  - Joint swelling [Unknown]
  - Injection site bruising [Unknown]
  - Catheter site injury [Unknown]
  - Incorrect dose administered [Unknown]
  - Hepatic enzyme increased [Unknown]
  - Product use issue [Unknown]
